FAERS Safety Report 10010512 (Version 1)
Quarter: 2014Q1

REPORT INFORMATION
  Report Type: Spontaneous
  Country: TR (occurrence: TR)
  Receive Date: 20140314
  Receipt Date: 20140314
  Transmission Date: 20141002
  Serious: Yes (Hospitalization, Disabling)
  Sender: FDA-Public Use
  Company Number: TR-ROCHE-1363020

PATIENT
  Age: 69 Year
  Sex: Female
  Weight: 71 kg

DRUGS (4)
  1. MABTHERA [Suspect]
     Indication: RHEUMATOID ARTHRITIS
     Route: 042
     Dates: start: 20140129, end: 20140129
  2. ARAVA [Concomitant]
     Indication: RHEUMATOID ARTHRITIS
     Route: 048
  3. DELTACORTILEN [Concomitant]
     Indication: RHEUMATOID ARTHRITIS
     Route: 048
  4. MICARDIS [Concomitant]
     Indication: HYPERTENSION
     Route: 048

REACTIONS (1)
  - Hemiplegia [Not Recovered/Not Resolved]
